FAERS Safety Report 5263415-8 (Version None)
Quarter: 2007Q1

REPORT INFORMATION
  Report Type: 
  Country: None (occurrence: None)
  Receive Date: 20070313
  Receipt Date: 20070306
  Transmission Date: 20070707
  Serious: Yes (Hospitalization)
  Sender: FDA-Public Use
  Company Number: 2007SE01247

PATIENT
  Age: 66 Year
  Sex: Male

DRUGS (5)
  1. BLOPRESS [Suspect]
     Indication: HYPERTENSION
     Route: 048
     Dates: start: 20060101, end: 20070226
  2. AMOXAN [Suspect]
     Route: 048
  3. ARTIST [Suspect]
     Route: 048
  4. ASPIRIN [Concomitant]
     Route: 048
  5. DILTIAZEM HCL [Concomitant]
     Route: 048

REACTIONS (1)
  - INTERSTITIAL LUNG DISEASE [None]
